FAERS Safety Report 24403236 (Version 1)
Quarter: 2024Q4

REPORT INFORMATION
  Report Type: Spontaneous
  Country: HK (occurrence: HK)
  Receive Date: 20241007
  Receipt Date: 20241007
  Transmission Date: 20250115
  Serious: No
  Sender: ROCHE
  Company Number: HK-ROCHE-3478614

PATIENT
  Age: 80 Year
  Sex: Female

DRUGS (3)
  1. OBINUTUZUMAB [Suspect]
     Active Substance: OBINUTUZUMAB
     Indication: Chronic lymphocytic leukaemia
     Dosage: TWO INFUSION BAGS SHOULD BE PREPARED FOR THE FIRST DOSE, 100 MG FOR THE FIRST INFUSION AND 900 MG FO
     Route: 042
  2. CHLORAMBUCIL [Suspect]
     Active Substance: CHLORAMBUCIL
     Indication: Chronic lymphocytic leukaemia
     Route: 065
  3. ACALABRUTINIB [Concomitant]
     Active Substance: ACALABRUTINIB

REACTIONS (1)
  - Neutropenia [Unknown]
